FAERS Safety Report 4500618-1 (Version None)
Quarter: 2004Q4

REPORT INFORMATION
  Report Type: 
  Country: None (occurrence: None)
  Receive Date: 20041115
  Receipt Date: 20041102
  Transmission Date: 20050328
  Serious: Yes (Other)
  Sender: FDA-Public Use
  Company Number: AU-BRISTOL-MYERS SQUIBB COMPANY-12753042

PATIENT
  Age: 15 Year
  Sex: Female
  Weight: 50 kg

DRUGS (6)
  1. ABILIFY [Suspect]
     Indication: ANXIETY DISORDER
     Route: 048
     Dates: start: 20040304, end: 20040324
  2. DROPERIDOL [Interacting]
     Route: 030
  3. BUSPIRONE [Concomitant]
  4. LAMICTAL [Concomitant]
  5. CENTRUM [Concomitant]
  6. OLANZAPINE [Concomitant]

REACTIONS (2)
  - DRUG INTERACTION [None]
  - HYPOTENSION [None]
